FAERS Safety Report 4651690-X (Version None)
Quarter: 2005Q2

REPORT INFORMATION
  Report Type: 
  Country: None (occurrence: None)
  Receive Date: 20050502
  Receipt Date: 20050418
  Transmission Date: 20051028
  Serious: Yes (Other)
  Sender: FDA-Public Use
  Company Number: HQWYE117119APR05

PATIENT
  Sex: Female

DRUGS (1)
  1. NORPLANT SYSTEM [Suspect]

REACTIONS (4)
  - DIALYSIS [None]
  - HYSTERECTOMY [None]
  - RENAL DISORDER [None]
  - UTERINE DISORDER [None]
